FAERS Safety Report 25101803 (Version 2)
Quarter: 2025Q1

REPORT INFORMATION
  Report Type: Spontaneous
  Country: US (occurrence: US)
  Receive Date: 20250320
  Receipt Date: 20250320
  Transmission Date: 20250409
  Serious: No
  Sender: ABBVIE
  Company Number: US-ABBVIE-6182694

PATIENT
  Age: 49 Year
  Sex: Female
  Weight: 60.781 kg

DRUGS (10)
  1. SKYRIZI [Suspect]
     Active Substance: RISANKIZUMAB-RZAA
     Indication: Psoriasis
     Dosage: FORM STRENGTH: 150 MILLIGRAM?THREE TO FIVE YEARS ALREADY
     Route: 058
  2. TRAMADOL [Concomitant]
     Active Substance: TRAMADOL
     Indication: Arthralgia
  3. OZEMPIC [Concomitant]
     Active Substance: SEMAGLUTIDE
     Indication: Diabetes mellitus
  4. OMEPRAZOLE [Concomitant]
     Active Substance: OMEPRAZOLE
     Indication: Gastrooesophageal reflux disease
     Dosage: DOSAGE: {DF}
  5. NITROGLYCERIN [Concomitant]
     Active Substance: NITROGLYCERIN
     Indication: Chest pain
  6. VITAMIN D [Concomitant]
     Active Substance: VITAMIN D NOS
     Indication: Vitamin D decreased
  7. VOLTAREN [Concomitant]
     Active Substance: DICLOFENAC SODIUM
     Indication: Myalgia
  8. OXYCODONE [Concomitant]
     Active Substance: OXYCODONE
     Indication: Abdominal pain upper
  9. ALBUTEROL [Concomitant]
     Active Substance: ALBUTEROL
     Indication: Asthma
  10. QULIPTA [Concomitant]
     Active Substance: ATOGEPANT
     Indication: Migraine

REACTIONS (3)
  - Injection site pain [Recovered/Resolved]
  - Injection site laceration [Recovering/Resolving]
  - Injection site reaction [Recovered/Resolved]

NARRATIVE: CASE EVENT DATE: 20250313
